FAERS Safety Report 6486759-0 (Version None)
Quarter: 2009Q4

REPORT INFORMATION
  Report Type: 
  Country: None (occurrence: None)
  Receive Date: 20091210
  Receipt Date: 20091125
  Transmission Date: 20100525
  Serious: Yes (Death, Hospitalization, Other)
  Sender: FDA-Public Use
  Company Number: FR-BRISTOL-MYERS SQUIBB COMPANY-14885784

PATIENT
  Age: 77 Year
  Sex: Female

DRUGS (14)
  1. GLUCOPHAGE [Suspect]
     Indication: DIABETES MELLITUS
     Route: 048
     Dates: end: 20090925
  2. HUMALOG [Concomitant]
  3. INSULIN [Concomitant]
  4. DAONIL [Concomitant]
  5. CO-RENITEC [Concomitant]
  6. HYPERIUM [Concomitant]
  7. PRAZOSIN HCL [Concomitant]
  8. KARDEGIC [Concomitant]
  9. TAHOR [Concomitant]
  10. ALLOPURINOL [Concomitant]
  11. PARIET [Concomitant]
  12. GAVISCON [Concomitant]
  13. DOMPERIDONE [Concomitant]
  14. SANMIGRAN [Concomitant]

REACTIONS (5)
  - ABDOMINAL PAIN [None]
  - DIARRHOEA [None]
  - FALL [None]
  - METABOLIC ACIDOSIS [None]
  - RENAL FAILURE ACUTE [None]
